FAERS Safety Report 15207892 (Version 2)
Quarter: 2018Q3

REPORT INFORMATION
  Report Type: Report from Study
  Country: JP (occurrence: JP)
  Receive Date: 20180727
  Receipt Date: 20180816
  Transmission Date: 20181010
  Serious: Yes (Other)
  Sender: FDA-Public Use
  Company Number: JP-PFIZER INC-2018303455

PATIENT
  Age: 4 Decade
  Sex: Male

DRUGS (15)
  1. CISPLATIN. [Suspect]
     Active Substance: CISPLATIN
     Dosage: UNK, CYCLIC (2 COURSES)
  2. IRINOTECAN HCL [Suspect]
     Active Substance: IRINOTECAN HYDROCHLORIDE
     Indication: TESTICULAR CANCER METASTATIC
     Dosage: UNK, CYCLIC(5 COURSES)
  3. IFOSFAMIDE. [Suspect]
     Active Substance: IFOSFAMIDE
     Indication: TESTICULAR CANCER METASTATIC
     Dosage: UNK , CYCLIC (2 COURSES)
  4. METHOTREXATE SODIUM. [Suspect]
     Active Substance: METHOTREXATE SODIUM
     Indication: TESTICULAR CANCER METASTATIC
     Dosage: UNK , CYCLIC (1 COURSES)
  5. ACTINOMYCIN D [Suspect]
     Active Substance: DACTINOMYCIN
     Indication: TESTICULAR CANCER METASTATIC
     Dosage: CYCLIC (1 COURSE)
  6. ETOPOSIDE. [Suspect]
     Active Substance: ETOPOSIDE
     Dosage: UNK, CYCLIC (1 COURSE)
  7. NEDAPLATIN [Suspect]
     Active Substance: NEDAPLATIN
     Indication: TESTICULAR CANCER METASTATIC
     Dosage: UNK, CYCLIC (5 COURSES)
  8. CISPLATIN. [Suspect]
     Active Substance: CISPLATIN
     Indication: TESTICULAR CANCER METASTATIC
     Dosage: UNK, CYCLIC (3 COURSES)
  9. BLEOMYCIN [Suspect]
     Active Substance: BLEOMYCIN SULFATE
     Indication: TESTICULAR CANCER METASTATIC
     Dosage: UNK, CYCLIC (3 COURSES)
  10. PACLITAXEL. [Suspect]
     Active Substance: PACLITAXEL
     Dosage: UNK, CYCLIC (1 COURSES)
  11. GEMCITABINE HYDROCHLORIDE. [Suspect]
     Active Substance: GEMCITABINE HYDROCHLORIDE
     Indication: TESTICULAR CANCER METASTATIC
     Dosage: UNK, CYCLIC (1 COURSE)
  12. ETOPOSIDE. [Suspect]
     Active Substance: ETOPOSIDE
     Indication: TESTICULAR CANCER METASTATIC
     Dosage: UNK, CYCLIC (3 COURSES)
  13. ETOPOSIDE. [Suspect]
     Active Substance: ETOPOSIDE
     Dosage: UNK, CYCLIC (1 COURSE)
  14. CISPLATIN. [Suspect]
     Active Substance: CISPLATIN
     Dosage: UNK, CYCLIC (1 COURSE)
  15. PACLITAXEL. [Suspect]
     Active Substance: PACLITAXEL
     Indication: TESTICULAR CANCER METASTATIC
     Dosage: UNK, CYCLIC (2 COURSES)

REACTIONS (2)
  - Second primary malignancy [Recovered/Resolved]
  - Acute myeloid leukaemia [Recovered/Resolved]
